FAERS Safety Report 6682529-9 (Version None)
Quarter: 2010Q2

REPORT INFORMATION
  Report Type: 
  Country: None (occurrence: None)
  Receive Date: 20100415
  Receipt Date: 20100406
  Transmission Date: 20101027
  Serious: Yes (Other)
  Sender: FDA-Public Use
  Company Number: US-BAYER-201018606NA

PATIENT
  Age: 59 Year
  Sex: Male

DRUGS (4)
  1. CIPRO [Suspect]
     Indication: ORCHITIS
     Dosage: UNIT DOSE: 500 MG
     Route: 048
     Dates: start: 20100319, end: 20100402
  2. ALTACE [Concomitant]
     Route: 065
  3. METFORMIN HCL [Concomitant]
     Route: 065
  4. VYTORIN [Concomitant]
     Route: 065

REACTIONS (7)
  - ASTHENIA [None]
  - BACK PAIN [None]
  - BLOOD PRESSURE DECREASED [None]
  - DYSPNOEA [None]
  - PAIN IN EXTREMITY [None]
  - PYREXIA [None]
  - TACHYCARDIA [None]
